FAERS Safety Report 5486458-8 (Version None)
Quarter: 2007Q4

REPORT INFORMATION
  Report Type: 
  Country: None (occurrence: None)
  Receive Date: 20071016
  Receipt Date: 20071015
  Transmission Date: 20080405
  Serious: Yes (Other)
  Sender: FDA-Public Use
  Company Number: A0687685A

PATIENT
  Sex: Male

DRUGS (10)
  1. COREG CR [Suspect]
     Indication: HYPERTENSION
     Dosage: 80MG PER DAY
     Route: 048
     Dates: start: 20070601
  2. GLUCOPHAGE [Concomitant]
  3. ZETIA [Concomitant]
  4. GLIMEPIRIDE [Concomitant]
  5. LASIX [Concomitant]
  6. POTASSIUM CHLORIDE [Concomitant]
  7. ZOCOR [Concomitant]
  8. IRON [Concomitant]
  9. ASCORBIC ACID [Concomitant]
  10. ATACAND [Concomitant]

REACTIONS (1)
  - YELLOW SKIN [None]
